FAERS Safety Report 5346942-4 (Version None)
Quarter: 2007Q2

REPORT INFORMATION
  Report Type: 
  Country: None (occurrence: None)
  Receive Date: 20070508
  Receipt Date: 20061221
  Transmission Date: 20071010
  Serious: Yes (Other)
  Sender: FDA-Public Use
  Company Number: 238361K06USA

PATIENT
  Age: 48 Year
  Sex: Female

DRUGS (3)
  1. REBIF [Suspect]
     Indication: MULTIPLE SCLEROSIS
     Dosage: 44 MCG, 3 IN 1 WEEKS, SUBCUTANEOUS
     Route: 058
     Dates: start: 20041209
  2. MOBIC [Concomitant]
  3. COUMADIN [Concomitant]

REACTIONS (6)
  - FATIGUE [None]
  - GASTROINTESTINAL HAEMORRHAGE [None]
  - HEADACHE [None]
  - MENISCUS OPERATION [None]
  - OCCULT BLOOD POSITIVE [None]
  - RED BLOOD CELL COUNT DECREASED [None]
